FAERS Safety Report 8009600-3 (Version None)
Quarter: 2011Q4

REPORT INFORMATION
  Report Type: 
  Country: None (occurrence: None)
  Receive Date: 20111228
  Receipt Date: 20111216
  Transmission Date: 20120403
  Serious: Yes (Hospitalization)
  Sender: FDA-Public Use
  Company Number: US-BIOGENIDEC-2011BI037033

PATIENT
  Age: 65 Year
  Sex: Female

DRUGS (1)
  1. TYSABRI [Suspect]
     Indication: MULTIPLE SCLEROSIS
     Route: 042
     Dates: start: 20071026, end: 20110816

REACTIONS (5)
  - MUSCLE SPASTICITY [None]
  - ANKLE FRACTURE [None]
  - FALL [None]
  - MOBILITY DECREASED [None]
  - VISUAL IMPAIRMENT [None]
